FAERS Safety Report 13263883 (Version 6)
Quarter: 2017Q3

REPORT INFORMATION
  Report Type: Spontaneous
  Country: US (occurrence: US)
  Receive Date: 20170223
  Receipt Date: 20170905
  Transmission Date: 20171127
  Serious: Yes (Hospitalization)
  Sender: FDA-Public Use
  Company Number: US-PFIZER INC-2017078905

PATIENT
  Age: 69 Year
  Sex: Female

DRUGS (1)
  1. XELJANZ XR [Suspect]
     Active Substance: TOFACITINIB CITRATE
     Indication: ARTHRITIS
     Dosage: 11 MG, UNK
     Dates: start: 201610

REACTIONS (4)
  - Sinusitis [Not Recovered/Not Resolved]
  - Night sweats [Not Recovered/Not Resolved]
  - Kidney infection [Unknown]
  - Nausea [Unknown]

NARRATIVE: CASE EVENT DATE: 201701
